FAERS Safety Report 15144024 (Version 2)
Quarter: 2018Q4

REPORT INFORMATION
  Report Type: Report from Study
  Country: US (occurrence: US)
  Receive Date: 20180713
  Receipt Date: 20181025
  Transmission Date: 20190204
  Serious: Yes (Hospitalization, Other)
  Sender: FDA-Public Use
  Company Number: US-SHIRE-US201824814

PATIENT
  Age: 66 Year
  Sex: Male

DRUGS (1)
  1. GATTEX [Suspect]
     Active Substance: TEDUGLUTIDE\WATER
     Indication: COELIAC DISEASE
     Dosage: 3.8 MG, 1X/DAY:QD
     Route: 058
     Dates: start: 20171204

REACTIONS (3)
  - Sepsis [Recovering/Resolving]
  - Feeling abnormal [Unknown]
  - Intestinal obstruction [Recovering/Resolving]

NARRATIVE: CASE EVENT DATE: 20180617
